FAERS Safety Report 4897664-5 (Version None)
Quarter: 2006Q1

REPORT INFORMATION
  Report Type: 
  Country: None (occurrence: None)
  Receive Date: 20060130
  Receipt Date: 20060116
  Transmission Date: 20060701
  Serious: Yes (Hospitalization, Other)
  Sender: FDA-Public Use
  Company Number: 2006008687

PATIENT
  Age: 82 Year
  Sex: Female

DRUGS (5)
  1. DETROL LA [Suspect]
     Indication: POLLAKIURIA
     Dosage: 4 MG (4 MG, 1 IN 1 D), ORAL
     Route: 048
     Dates: start: 20050101
  2. ULTRACET [Suspect]
     Indication: PAIN
  3. DIAZEPAM [Concomitant]
  4. CALCIUM WITH VITAMIN D (CALCIUM PHOSPHATE, CALCIUM SODIUM LACTATE, ERG [Concomitant]
  5. CENTRUMM SILVER (ASCORBIC ACID, CALCIUM, MINERALS NOS, RETINOL, TOCOPH [Concomitant]

REACTIONS (5)
  - CONSTIPATION [None]
  - DRUG EFFECT DECREASED [None]
  - MYOCARDIAL INFARCTION [None]
  - URINARY INCONTINENCE [None]
  - URINARY TRACT INFECTION [None]
